FAERS Safety Report 8437471-X (Version None)
Quarter: 2012Q2

REPORT INFORMATION
  Report Type: 
  Country: None (occurrence: None)
  Receive Date: 20120614
  Receipt Date: 20120330
  Transmission Date: 20120825
  Serious: No
  Sender: FDA-Public Use
  Company Number: US-AMGEN-USASP2012020546

PATIENT
  Age: 57 Year
  Sex: Female

DRUGS (6)
  1. PROLIA [Suspect]
     Indication: OSTEOPOROSIS
     Dosage: 60 MG, Q6MO
     Dates: start: 20110903
  2. AMBIEN [Concomitant]
  3. TRAMADOL HCL [Concomitant]
  4. CALCIUM + VITAMIN D                /01483701/ [Concomitant]
  5. SYNTHROID [Concomitant]
     Dates: start: 20090101
  6. FLEXERIL [Concomitant]

REACTIONS (9)
  - FOOD POISONING [None]
  - BONE PAIN [None]
  - EMOTIONAL DISTRESS [None]
  - CHILLS [None]
  - INFLUENZA LIKE ILLNESS [None]
  - TOOTHACHE [None]
  - BACK PAIN [None]
  - PAIN [None]
  - DEPRESSED MOOD [None]
